FAERS Safety Report 15597787 (Version 4)
Quarter: 2018Q4

REPORT INFORMATION
  Report Type: Spontaneous
  Country: ES (occurrence: SE)
  Receive Date: 20181108
  Receipt Date: 20181226
  Transmission Date: 20190205
  Serious: Yes (Other)
  Sender: FDA-Public Use
  Company Number: ES-PFIZER INC-2018448424

PATIENT
  Sex: Female

DRUGS (17)
  1. PHENYTOIN SODIUM. [Suspect]
     Active Substance: PHENYTOIN SODIUM
     Dosage: UNK
  2. CITALOPRAM [Suspect]
     Active Substance: CITALOPRAM HYDROBROMIDE
     Dosage: UNK
  3. TRAZODONE [Suspect]
     Active Substance: TRAZODONE HYDROCHLORIDE
     Dosage: UNK
  4. BEVACIZUMAB. [Suspect]
     Active Substance: BEVACIZUMAB
     Dosage: UNK
  5. FLUTICASONE. [Suspect]
     Active Substance: FLUTICASONE
     Dosage: UNK
  6. BUPROPION. [Suspect]
     Active Substance: BUPROPION
     Dosage: UNK
  7. TOLTERODINE TARTRATE. [Suspect]
     Active Substance: TOLTERODINE TARTRATE
     Dosage: UNK
  8. METHYLPHENOBARBITAL/PHENYTOIN [Suspect]
     Active Substance: MEPHOBARBITAL\PHENYTOIN
     Dosage: UNK
  9. PINDOLOL. [Suspect]
     Active Substance: PINDOLOL
     Dosage: UNK
  10. LEVOTHYROXINE. [Suspect]
     Active Substance: LEVOTHYROXINE
     Dosage: UNK
  11. HYDROCODONE BITARTRATE AND ACETAMINOPHEN [Suspect]
     Active Substance: ACETAMINOPHEN\HYDROCODONE BITARTRATE
     Dosage: UNK
  12. FEXOFENADINE [Suspect]
     Active Substance: FEXOFENADINE\FEXOFENADINE HYDROCHLORIDE
     Dosage: UNK
  13. IRINOTECAN HCL [Suspect]
     Active Substance: IRINOTECAN HYDROCHLORIDE
     Dosage: UNK
  14. SIMVASTATIN. [Suspect]
     Active Substance: SIMVASTATIN
     Dosage: UNK
  15. TEMOZOLOMIDE. [Suspect]
     Active Substance: TEMOZOLOMIDE
     Dosage: UNK
  16. OMEPRAZOLE. [Suspect]
     Active Substance: OMEPRAZOLE
     Dosage: UNK
     Route: 048
  17. DEXAMETHASONE. [Suspect]
     Active Substance: DEXAMETHASONE
     Dosage: UNK

REACTIONS (6)
  - White blood cell count abnormal [Unknown]
  - Neutrophil count abnormal [Unknown]
  - Urinary tract infection [Unknown]
  - Sepsis [Unknown]
  - Haemoglobin abnormal [Unknown]
  - Oesophagitis [Unknown]
